FAERS Safety Report 5656555-2 (Version None)
Quarter: 2008Q1

REPORT INFORMATION
  Report Type: 
  Country: None (occurrence: None)
  Receive Date: 20080310
  Receipt Date: 20080305
  Transmission Date: 20080703
  Serious: Yes (Other)
  Sender: FDA-Public Use
  Company Number: GB-BRISTOL-MYERS SQUIBB COMPANY-14053466

PATIENT
  Age: 33 Year
  Sex: Female

DRUGS (5)
  1. SUSTIVA [Suspect]
     Indication: HIV INFECTION
     Dates: start: 20021001, end: 20070816
  2. NEVIRAPINE [Suspect]
     Route: 048
     Dates: start: 20070801, end: 20070905
  3. KIVEXA [Suspect]
     Dosage: 1 DOSAGE FORM= 1 TABLET (ABACAVIR 600MG+LAMIVUDINE 300MG).
     Route: 048
     Dates: start: 20070101, end: 20070901
  4. COMBIVIR [Suspect]
     Dosage: 1 DOSAGE FORM=1 TABLET (ZIDOVUDINE 300MG + LAMIVUDINE 150MG)
     Route: 048
     Dates: start: 20070920
  5. KALETRA [Suspect]
     Dosage: 2 DOSAGE FORM=2TABS (LOPINAVIR 200MG+ RITONAVIR 50MG)
     Route: 048
     Dates: start: 20070920

REACTIONS (3)
  - ABORTION INDUCED [None]
  - FOETAL DISORDER [None]
  - PREGNANCY [None]
